FAERS Safety Report 18087099 (Version 1)
Quarter: 2020Q3

REPORT INFORMATION
  Report Type: Spontaneous
  Country: US (occurrence: US)
  Receive Date: 20200729
  Receipt Date: 20200729
  Transmission Date: 20201103
  Serious: Yes (Death)
  Sender: FDA-Public Use
  Company Number: None

PATIENT
  Age: 72 Year
  Sex: Male
  Weight: 53.55 kg

DRUGS (4)
  1. IRON [Concomitant]
     Active Substance: IRON
  2. METOPROLOL. [Concomitant]
     Active Substance: METOPROLOL
  3. BOSULIF [Suspect]
     Active Substance: BOSUTINIB MONOHYDRATE
     Indication: ACUTE MYELOID LEUKAEMIA
     Route: 048
     Dates: start: 20200603, end: 20200722
  4. VITAMIN C [Concomitant]
     Active Substance: ASCORBIC ACID

REACTIONS (1)
  - Death [None]

NARRATIVE: CASE EVENT DATE: 20200722
